FAERS Safety Report 8024577-2 (Version None)
Quarter: 2012Q1

REPORT INFORMATION
  Report Type: 
  Country: None (occurrence: None)
  Receive Date: 20120105
  Receipt Date: 20120103
  Transmission Date: 20120608
  Serious: No
  Sender: FDA-Public Use
  Company Number: US-BAYER-2012-001143

PATIENT
  Sex: Male
  Weight: 84 kg

DRUGS (3)
  1. ASPIRIN [Concomitant]
  2. MULTI-VITAMIN [Concomitant]
  3. ALEVE (CAPLET) [Suspect]
     Indication: MUSCULOSKELETAL PAIN
     Dosage: UNK UNK, PRN
     Route: 048
     Dates: start: 20111120, end: 20120102

REACTIONS (1)
  - MUSCULOSKELETAL PAIN [None]
